FAERS Safety Report 8814927 (Version 2)
Quarter: 2013Q2

REPORT INFORMATION
  Report Type: Report from Study
  Country: CA (occurrence: CA)
  Receive Date: 20120928
  Receipt Date: 20130618
  Transmission Date: 20140414
  Serious: Yes (Hospitalization, Disabling, Other)
  Sender: FDA-Public Use
  Company Number: CA-PFIZER INC-2012236170

PATIENT
  Age: 57 Year
  Sex: Male

DRUGS (9)
  1. ZOLOFT [Suspect]
     Indication: MAJOR DEPRESSION
     Dosage: 200 MG, 1X/DAY
     Route: 048
     Dates: start: 20130605
  2. OLANZAPINE [Suspect]
     Indication: MAJOR DEPRESSION
     Dosage: 20 MG, 1X/DAY
     Route: 048
     Dates: start: 20120604, end: 20120731
  3. OLANZAPINE [Suspect]
     Dosage: 15 MG, 1X/DAY
     Route: 048
     Dates: start: 20120801
  4. ADVAIR [Concomitant]
     Indication: ASTHMA
     Dosage: UNK
     Route: 045
     Dates: start: 2010
  5. RANITIDINE [Concomitant]
     Indication: GASTRIC ULCER
     Dosage: UNK
     Route: 048
     Dates: start: 2005
  6. ATORVASTATIN [Concomitant]
     Indication: BLOOD CHOLESTEROL
     Dosage: UNK
     Route: 048
     Dates: start: 2002
  7. LORAZEPAM [Concomitant]
     Indication: INSOMNIA
     Dosage: UNK
     Route: 048
     Dates: start: 20120628
  8. LORAZEPAM [Concomitant]
     Indication: ANXIETY
  9. FUROSEMIDE [Concomitant]
     Indication: OEDEMA PERIPHERAL
     Dosage: UNK
     Route: 048
     Dates: start: 20120801

REACTIONS (1)
  - Hip fracture [Recovered/Resolved]
